FAERS Safety Report 25150275 (Version 1)
Quarter: 2025Q2

REPORT INFORMATION
  Report Type: Spontaneous
  Country: NO (occurrence: NO)
  Receive Date: 20250402
  Receipt Date: 20250402
  Transmission Date: 20250716
  Serious: Yes (Other)
  Sender: BOEHRINGER INGELHEIM
  Company Number: NO-BoehringerIngelheim-2025-BI-019402

PATIENT
  Sex: Female

DRUGS (2)
  1. SPIRIVA [Suspect]
     Active Substance: TIOTROPIUM BROMIDE MONOHYDRATE
     Indication: Bronchitis
     Dosage: 2 DOSES EVERY MORNING FOR MANY YEARS
  2. VENTOLIN [Concomitant]
     Active Substance: ALBUTEROL SULFATE
     Indication: Condition aggravated
     Dosage: TWO PUSHES TREE TIMES DAILY.

REACTIONS (4)
  - Oxygen saturation decreased [Unknown]
  - Dyspnoea [Unknown]
  - Cough [Unknown]
  - Dyspnoea exertional [Unknown]
